FAERS Safety Report 16036586 (Version 1)
Quarter: 2019Q1

REPORT INFORMATION
  Report Type: Spontaneous
  Country: DE (occurrence: DE)
  Receive Date: 20190305
  Receipt Date: 20190305
  Transmission Date: 20190418
  Serious: Yes (Other)
  Sender: FDA-Public Use
  Company Number: DE-JNJFOC-20190303425

PATIENT
  Age: 78 Year
  Sex: Female
  Weight: 53.6 kg

DRUGS (5)
  1. AMLODIPINE [Concomitant]
     Active Substance: AMLODIPINE BESYLATE
     Route: 065
  2. XARELTO [Suspect]
     Active Substance: RIVAROXABAN
     Indication: POSTOPERATIVE CARE
     Route: 048
     Dates: start: 20190116, end: 20190213
  3. XARELTO [Suspect]
     Active Substance: RIVAROXABAN
     Indication: HIP ARTHROPLASTY
     Route: 048
     Dates: start: 20190116, end: 20190213
  4. MONO EMBOLEX [Concomitant]
     Active Substance: CERTOPARIN SODIUM
     Route: 065
     Dates: end: 20190116
  5. TELMISARTAN. [Concomitant]
     Active Substance: TELMISARTAN
     Route: 065

REACTIONS (2)
  - Pulmonary embolism [Recovering/Resolving]
  - Dyspnoea [Recovering/Resolving]

NARRATIVE: CASE EVENT DATE: 20190201
